FAERS Safety Report 9617994 (Version 2)
Quarter: 2013Q4

REPORT INFORMATION
  Report Type: Report from Study
  Country: SE (occurrence: SE)
  Receive Date: 20131011
  Receipt Date: 20131017
  Transmission Date: 20140711
  Serious: Yes (Hospitalization)
  Sender: FDA-Public Use
  Company Number: SE-ASTRAZENECA-2013SE74251

PATIENT
  Age: 25878 Day
  Sex: Male

DRUGS (12)
  1. AZD6140 [Suspect]
     Indication: CORONARY ARTERY DISEASE
     Route: 048
     Dates: start: 20111012, end: 20130906
  2. AZD6140 [Suspect]
     Indication: CORONARY ARTERY DISEASE
     Route: 048
     Dates: start: 20130909, end: 20131003
  3. DIKLOFENAK [Suspect]
     Indication: TENDON RUPTURE
     Route: 048
     Dates: start: 20121210, end: 20130906
  4. METOPROLOL [Concomitant]
     Indication: ACUTE CORONARY SYNDROME
     Route: 048
  5. ALLOPURINOL [Concomitant]
     Indication: GOUT
     Route: 048
  6. SUSCARD [Concomitant]
     Indication: ANGINA PECTORIS
     Route: 048
  7. SIMVASTATIN [Concomitant]
     Indication: HYPERCHOLESTEROLAEMIA
     Route: 048
  8. ATACAND PLUS [Concomitant]
     Indication: HYPERTENSION
     Route: 048
  9. XATRAL [Concomitant]
     Indication: BENIGN PROSTATIC HYPERPLASIA
     Dosage: ONCE DAILY
     Route: 048
     Dates: start: 20110929
  10. METFORMIN [Concomitant]
     Indication: TYPE 2 DIABETES MELLITUS
     Route: 048
  11. ASA [Concomitant]
     Route: 048
     Dates: end: 20130907
  12. ASA [Concomitant]
     Route: 048
     Dates: start: 20130920

REACTIONS (1)
  - Gastric ulcer haemorrhage [Recovered/Resolved]
